FAERS Safety Report 4377937-5 (Version None)
Quarter: 2004Q2

REPORT INFORMATION
  Report Type: 
  Country: None (occurrence: None)
  Receive Date: 20040601
  Receipt Date: 20040210
  Transmission Date: 20050107
  Serious: No
  Sender: FDA-Public Use
  Company Number: WAES 0402USA01334

PATIENT
  Sex: Female
  Weight: 81.6475 kg

DRUGS (1)
  1. ZETIA [Suspect]
     Dosage: 10MG/DAILY;PO
     Route: 048

REACTIONS (3)
  - DYSPNOEA [None]
  - RASH PRURITIC [None]
  - THROAT TIGHTNESS [None]
